FAERS Safety Report 4872673-0 (Version None)
Quarter: 2006Q1

REPORT INFORMATION
  Report Type: 
  Country: None (occurrence: None)
  Receive Date: 20060105
  Receipt Date: 20051206
  Transmission Date: 20060701
  Serious: Yes (Hospitalization)
  Sender: FDA-Public Use
  Company Number: PHRM2005FR03208

PATIENT
  Age: 36 Year
  Sex: Male

DRUGS (5)
  1. LAMISIL [Suspect]
     Route: 048
     Dates: start: 20051010, end: 20051107
  2. ATARAX [Suspect]
     Dosage: 250 MG/DAY, THEN 400 MG/DAY
     Route: 048
     Dates: start: 20050929, end: 20051105
  3. DEPAKENE [Concomitant]
     Route: 048
     Dates: start: 20051003
  4. RIVOTRIL [Concomitant]
     Dosage: 40 DROPS/DAY
     Route: 048
     Dates: start: 20050909
  5. CLOZAPINE (LEPONEX) [Concomitant]
     Dosage: 3.5 TABS/DAY
     Route: 048
     Dates: start: 20051006

REACTIONS (5)
  - BLOOD CREATINE PHOSPHOKINASE INCREASED [None]
  - BLOOD ELECTROLYTES ABNORMAL [None]
  - HYPONATRAEMIA [None]
  - MYALGIA [None]
  - RHABDOMYOLYSIS [None]
